FAERS Safety Report 7381894-7 (Version None)
Quarter: 2011Q1

REPORT INFORMATION
  Report Type: 
  Country: None (occurrence: None)
  Receive Date: 20110329
  Receipt Date: 20110322
  Transmission Date: 20110831
  Serious: Yes (Other)
  Sender: FDA-Public Use
  Company Number: CHPA2011US04349

PATIENT
  Sex: Male
  Weight: 90.703 kg

DRUGS (6)
  1. MULTIVITAMIN ^LAPPE^ [Concomitant]
     Indication: SUPPLEMENTATION THERAPY
     Dosage: 1 DF, QD
     Route: 048
  2. CAFFEINE [Concomitant]
     Dosage: .5 DF, PRN
     Route: 048
  3. CALCIUM CITRATE W/VITAMIN D NOS [Concomitant]
     Dosage: 500 MG, QD
     Route: 048
  4. ASCORBIC ACID [Concomitant]
     Indication: SUPPLEMENTATION THERAPY
     Dosage: 500 MG, QD
     Route: 048
  5. FISH OIL [Concomitant]
     Indication: SUPPLEMENTATION THERAPY
     Dosage: 1000 MG, QD
     Route: 048
  6. EXCEDRIN (MIGRAINE) [Suspect]
     Indication: EMOTIONAL DISORDER
     Dosage: 2 DF, QD, PRN
     Route: 048
     Dates: start: 20030101

REACTIONS (6)
  - DRUG DEPENDENCE [None]
  - HEADACHE [None]
  - INTENTIONAL DRUG MISUSE [None]
  - THERAPEUTIC RESPONSE UNEXPECTED [None]
  - OFF LABEL USE [None]
  - BLOOD CHOLESTEROL INCREASED [None]
